FAERS Safety Report 20436524 (Version 3)
Quarter: 2022Q2

REPORT INFORMATION
  Report Type: Spontaneous
  Country: JP (occurrence: JP)
  Receive Date: 20220207
  Receipt Date: 20220420
  Transmission Date: 20220721
  Serious: Yes (Other)
  Sender: FDA-Public Use
  Company Number: JP-ASTELLAS-2022JP001898

PATIENT
  Age: 8 Decade
  Sex: Male

DRUGS (3)
  1. PADCEV [Suspect]
     Active Substance: ENFORTUMAB VEDOTIN-EJFV
     Indication: Transitional cell carcinoma metastatic
     Dosage: UNK UNK, UNKNOWN FREQ.
     Route: 041
     Dates: start: 20211214, end: 20211214
  2. PADCEV [Suspect]
     Active Substance: ENFORTUMAB VEDOTIN-EJFV
     Dosage: UNK UNK, UNKNOWN FREQ.
     Route: 041
     Dates: start: 20211229
  3. ZOSYN [Concomitant]
     Active Substance: PIPERACILLIN SODIUM\TAZOBACTAM SODIUM
     Indication: Cholangitis acute
     Dosage: UNK UNK, UNKNOWN FREQ.
     Route: 065

REACTIONS (4)
  - Metastases to liver [Unknown]
  - Malignant neoplasm progression [Unknown]
  - Taste disorder [Unknown]
  - Pancreatic enzymes increased [Unknown]

NARRATIVE: CASE EVENT DATE: 20220126
